FAERS Safety Report 7223750-0 (Version None)
Quarter: 2011Q1

REPORT INFORMATION
  Report Type: 
  Country: None (occurrence: None)
  Receive Date: 20110112
  Receipt Date: 20101108
  Transmission Date: 20110831
  Serious: No
  Sender: FDA-Public Use
  Company Number: US-ALLERGAN-1014365US

PATIENT
  Age: 60 Year
  Sex: Female

DRUGS (2)
  1. RESTASIS [Suspect]
     Indication: DRY EYE
     Dosage: 1 GTT, BID
     Route: 047
     Dates: start: 20100901
  2. SYSTANE [Concomitant]
     Indication: DRY EYE
     Dosage: 1 GTT, PRN
     Route: 047

REACTIONS (7)
  - SENSATION OF FOREIGN BODY [None]
  - UPPER-AIRWAY COUGH SYNDROME [None]
  - PHARYNGEAL OEDEMA [None]
  - GASTRIC ULCER [None]
  - OESOPHAGEAL OEDEMA [None]
  - OESOPHAGEAL DISORDER [None]
  - THROAT IRRITATION [None]
